FAERS Safety Report 8257107-0 (Version None)
Quarter: 2012Q2

REPORT INFORMATION
  Report Type: 
  Country: None (occurrence: None)
  Receive Date: 20120403
  Receipt Date: 20120323
  Transmission Date: 20120825
  Serious: Yes (Other)
  Sender: FDA-Public Use
  Company Number: US-JNJFOC-20120312979

PATIENT
  Sex: Female
  Weight: 67.13 kg

DRUGS (7)
  1. UNKNOWN MEDICATION [Concomitant]
     Indication: THYROID DISORDER
     Route: 065
  2. BLOOD PRESSURE MEDICATION NOS [Concomitant]
     Indication: BLOOD PRESSURE ABNORMAL
     Route: 065
  3. OTHER NASAL PREPARATIONS [Suspect]
     Indication: SINUS HEADACHE
     Route: 045
     Dates: end: 20120201
  4. MEDICATION FOR CHOLESTEROL [Concomitant]
     Indication: BLOOD CHOLESTEROL ABNORMAL
     Route: 065
  5. ARAVA [Concomitant]
     Indication: RHEUMATOID ARTHRITIS
     Route: 065
     Dates: start: 20090101
  6. REMICADE [Suspect]
     Indication: RHEUMATOID ARTHRITIS
     Route: 042
     Dates: start: 20090101, end: 20120101
  7. UNSPECIFIED NASAL SPRAY [Suspect]
     Indication: SINUS HEADACHE
     Route: 045
     Dates: end: 20120201

REACTIONS (3)
  - SINUSITIS [None]
  - PRODUCT QUALITY ISSUE [None]
  - MOVEMENT DISORDER [None]
